FAERS Safety Report 10078942 (Version 1)
Quarter: 2014Q2

REPORT INFORMATION
  Report Type: Spontaneous
  Country: US (occurrence: US)
  Receive Date: 20140415
  Receipt Date: 20140415
  Transmission Date: 20141212
  Serious: No
  Sender: FDA-Public Use
  Company Number: US-BAYER-2014-055458

PATIENT
  Sex: Female

DRUGS (1)
  1. BEYAZ [Suspect]
     Dosage: UNK
     Dates: start: 20140406

REACTIONS (5)
  - Abdominal pain upper [None]
  - Nausea [None]
  - Insomnia [None]
  - Irritability [None]
  - Acne [None]
